FAERS Safety Report 19769714 (Version 2)
Quarter: 2022Q3

REPORT INFORMATION
  Report Type: Spontaneous
  Country: CA (occurrence: CA)
  Receive Date: 20210831
  Receipt Date: 20220801
  Transmission Date: 20221027
  Serious: Yes (Death, Other)
  Sender: FDA-Public Use
  Company Number: CA-PFIZER INC-202101074925

PATIENT
  Age: 84 Year
  Sex: Male
  Weight: 68.04 kg

DRUGS (1)
  1. VYNDAQEL [Suspect]
     Active Substance: TAFAMIDIS MEGLUMINE
     Indication: Cardiac amyloidosis
     Dosage: 80 MG, 1X/DAY
     Route: 048
     Dates: start: 20210310, end: 2022

REACTIONS (2)
  - Death [Fatal]
  - Cardiac failure [Unknown]

NARRATIVE: CASE EVENT DATE: 20210816
